FAERS Safety Report 6470821-2 (Version None)
Quarter: 2009Q4

REPORT INFORMATION
  Report Type: 
  Country: None (occurrence: None)
  Receive Date: 20091203
  Receipt Date: 20091120
  Transmission Date: 20100525
  Serious: Yes (Life-Threatening, Hospitalization)
  Sender: FDA-Public Use
  Company Number: DE-MYLANLABS-2009S1009028

PATIENT
  Age: 69 Year
  Sex: Female
  Weight: 60 kg

DRUGS (10)
  1. RAMIPRIL [Interacting]
     Indication: HYPERTENSION
     Dosage: DOSIS UND HAUFIGKEIT DER EINNAHME SIND UNBEKANNT
     Route: 048
     Dates: start: 20000101, end: 20090315
  2. ZOLPIDEM [Suspect]
     Indication: SLEEP DISORDER
     Dosage: ZUR NACHT
     Route: 048
     Dates: start: 20060101, end: 20090313
  3. THEOPHYLLINE [Interacting]
     Indication: CHRONIC OBSTRUCTIVE PULMONARY DISEASE
     Route: 048
     Dates: start: 20050101
  4. PANTOZOL [Interacting]
     Indication: PROPHYLAXIS AGAINST GASTROINTESTINAL ULCER
     Route: 048
     Dates: start: 20080101
  5. HALOPERIDOL [Interacting]
     Indication: RESTLESSNESS
     Route: 048
     Dates: start: 20070101, end: 20090313
  6. METAMIZOLE [Concomitant]
     Indication: PAIN
     Route: 048
     Dates: start: 20090311, end: 20090313
  7. NEBIVOLOL [Concomitant]
     Indication: HYPERTENSION
     Route: 048
     Dates: start: 20000101
  8. ISCOVER [Concomitant]
     Indication: ISCHAEMIC HEART DISEASE PROPHYLAXIS
     Route: 048
     Dates: start: 20090226, end: 20090315
  9. IBUPROFEN [Concomitant]
     Indication: PAIN
     Route: 048
     Dates: start: 20090226, end: 20090311
  10. CALCIUM [Concomitant]
     Indication: OSTEOPOROSIS
     Route: 048
     Dates: start: 20030101, end: 20090313

REACTIONS (3)
  - DRUG INTERACTION [None]
  - HYPONATRAEMIA [None]
  - RHABDOMYOLYSIS [None]
